FAERS Safety Report 14549347 (Version 3)
Quarter: 2018Q2

REPORT INFORMATION
  Report Type: Spontaneous
  Country: IR (occurrence: IR)
  Receive Date: 20180219
  Receipt Date: 20180424
  Transmission Date: 20180711
  Serious: Yes (Death, Life-Threatening, Hospitalization, Other)
  Sender: FDA-Public Use
  Company Number: IR-ACCORD-063358

PATIENT
  Age: 25 Year
  Sex: Male

DRUGS (2)
  1. CALCIUM GLUCONATE. [Suspect]
     Active Substance: CALCIUM GLUCONATE
     Dosage: FOLLOWED BY IV INFUSION OF 100 MG/H (EQUAL TO 1.16 MG/KG/H)
  2. AMLODIPINE [Suspect]
     Active Substance: AMLODIPINE BESYLATE
     Dosage: STRENGTH: 5 MG, 90 TABLETS

REACTIONS (7)
  - Metabolic acidosis [Unknown]
  - Multiple organ dysfunction syndrome [Fatal]
  - Intentional overdose [Fatal]
  - Suicide attempt [Fatal]
  - Shock [Not Recovered/Not Resolved]
  - Rhabdomyolysis [Unknown]
  - Pulmonary oedema [Recovered/Resolved]
